FAERS Safety Report 16985661 (Version 1)
Quarter: 2019Q4

REPORT INFORMATION
  Report Type: Spontaneous
  Country: US (occurrence: US)
  Receive Date: 20191101
  Receipt Date: 20191101
  Transmission Date: 20200122
  Serious: No
  Sender: FDA-Public Use
  Company Number: US-TEVA-2019-US-1132506

PATIENT
  Age: 29 Year
  Sex: Female

DRUGS (2)
  1. PROVIGIL [Suspect]
     Active Substance: MODAFINIL
     Route: 065
     Dates: start: 201908
  2. PROVIGIL [Suspect]
     Active Substance: MODAFINIL
     Dosage: DOSE INCREASED 200MG
     Route: 065
     Dates: end: 2019

REACTIONS (3)
  - Somnolence [Unknown]
  - Fatigue [Unknown]
  - Feeling jittery [Unknown]

NARRATIVE: CASE EVENT DATE: 201908
